FAERS Safety Report 6996473-0 (Version None)
Quarter: 2010Q3

REPORT INFORMATION
  Report Type: 
  Country: None (occurrence: None)
  Receive Date: 20100918
  Receipt Date: 20090316
  Transmission Date: 20110219
  Serious: No
  Sender: FDA-Public Use
  Company Number: US-WYE-H08620209

PATIENT
  Sex: Female

DRUGS (6)
  1. PREMPRO [Suspect]
     Dosage: UNKNOWN
     Route: 048
  2. AZITHROMYCIN [Concomitant]
  3. OMEPRAZOLE [Concomitant]
  4. TRIAMTERENE AND HYDROCHLOROTHIAZIDE [Concomitant]
  5. LEVOTHYROXINE [Concomitant]
  6. FLUTICASONE PROPIONATE [Concomitant]

REACTIONS (1)
  - COELIAC DISEASE [None]
